FAERS Safety Report 9302579 (Version 1)
Quarter: 2013Q2

REPORT INFORMATION
  Report Type: Spontaneous
  Country: FR (occurrence: None)
  Receive Date: 20130517
  Receipt Date: 20130517
  Transmission Date: 20140414
  Serious: Yes (Other)
  Sender: FDA-Public Use
  Company Number: DSM-2013-00460

PATIENT
  Age: 78 Year
  Sex: Female
  Weight: 35 kg

DRUGS (13)
  1. OLMETEC [Suspect]
     Indication: HYPERTENSION
     Dosage: (40 MG, 1 IN 1D)
     Route: 048
     Dates: start: 201110, end: 201112
  2. ELISOR [Suspect]
     Indication: DYSLIPIDAEMIA
     Dosage: (20 MG, 1 IN 1D)
     Route: 048
     Dates: start: 0200, end: 201104
  3. CRESTOR [Suspect]
     Indication: DYSLIPIDAEMIA
     Dosage: 1 DOSAGE FORMS (1 DOSAGE FORMS, 1 IN 1 D),ORAL
     Route: 048
     Dates: start: 201104, end: 201105
  4. TAREG [Suspect]
     Indication: HYPERTENSION
     Dosage: 1 DOSAGE FORMS (1 DOSAGE FORMS, 1 IN 1 D),ORAL
     Route: 048
     Dates: start: 2008, end: 201110
  5. PRITOR [Suspect]
     Indication: PRODUCT USED FOR UNKNOWN INDICATION
     Dosage: 1 DOSAGE FORMS (1 DOSAGE FORMS, 1 IN 1 D),ORAL
     Route: 048
     Dates: start: 201112, end: 20130113
  6. SMECTA (VANILLIN, SACCHARIN SODIUM, GLUCOSE MONOHYDRATE, SMECTITE) (VANILLIN, SACCHARIN SODIUM, GLUCOSE MONOHYDRATE, SMECTITE) [Concomitant]
  7. VITAMIN B12 (CYANOCOBALAMIN)(CYANOCOBALAMIN) [Concomitant]
  8. SOTALEX (SOTALOL HYDROCHLORIDE) (80 MILLIGRAM, TABLET)(SOTALOL HYDROCHLORIDE) [Concomitant]
  9. FLODIL LP (FELODIPINE)(5 MILLIGRAM, PROLONGED-RELEASE TABLET) (FELODIPINE) [Concomitant]
  10. KARDEGIC (ACETYLSALICYLATE LYSINE)(75 MILLIGRAM, ORAL POWDER)(ACETYLSALICYLATE LYSINE) [Concomitant]
  11. LEXOMIL ROCHE (BROMAZEPAM)(TABLET)(BROMAZEPAM) [Concomitant]
  12. LEVOTHYROX (LEVOTHYROXINE SODIUM)(100 MICROGRAM, [Concomitant]
  13. CORDARONE (AMIODARONE HYDROCHLORIDE) (200 MILLIGRAM, TABLET) (AMIODARONE HYDROCHLORIDE) [Concomitant]

REACTIONS (4)
  - Diarrhoea [None]
  - Colitis microscopic [None]
  - Weight decreased [None]
  - Endoscopy abnormal [None]
